FAERS Safety Report 8795480 (Version 2)
Quarter: 2015Q3

REPORT INFORMATION
  Report Type: Report from Study
  Country: US (occurrence: US)
  Receive Date: 20120917
  Receipt Date: 20150729
  Transmission Date: 20151125
  Serious: Yes (Death)
  Sender: FDA-Public Use
  Company Number: US-ROCHE-1127460

PATIENT
  Age: 56 Year
  Sex: Male
  Weight: 79.1 kg

DRUGS (11)
  1. ATIVAN [Concomitant]
     Active Substance: LORAZEPAM
     Route: 042
  2. AVASTIN [Suspect]
     Active Substance: BEVACIZUMAB
     Route: 042
  3. AVASTIN [Suspect]
     Active Substance: BEVACIZUMAB
     Indication: PANCREATIC CARCINOMA
     Route: 042
     Dates: start: 20050606
  4. ALOXI [Concomitant]
     Active Substance: PALONOSETRON HYDROCHLORIDE
     Route: 042
  5. HEPARIN [Concomitant]
     Active Substance: HEPARIN SODIUM
     Route: 040
  6. GEMZAR [Concomitant]
     Active Substance: GEMCITABINE HYDROCHLORIDE
     Route: 042
  7. NEULASTA [Concomitant]
     Active Substance: PEGFILGRASTIM
     Route: 042
  8. ELOXATIN [Concomitant]
     Active Substance: OXALIPLATIN
  9. OXALIPLATIN. [Concomitant]
     Active Substance: OXALIPLATIN
  10. HEPARIN [Concomitant]
     Active Substance: HEPARIN SODIUM
     Route: 065
  11. DEXAMETHASONE. [Concomitant]
     Active Substance: DEXAMETHASONE
     Route: 042

REACTIONS (6)
  - Paraesthesia [Not Recovered/Not Resolved]
  - Death [Fatal]
  - Dizziness [Unknown]
  - Paraesthesia [Unknown]
  - Muscle spasms [Unknown]
  - Tinnitus [Unknown]

NARRATIVE: CASE EVENT DATE: 20060314
